FAERS Safety Report 7549401-3 (Version None)
Quarter: 2011Q2

REPORT INFORMATION
  Report Type: 
  Country: None (occurrence: None)
  Receive Date: 20110615
  Receipt Date: 20110531
  Transmission Date: 20111010
  Serious: Yes (Hospitalization)
  Sender: FDA-Public Use
  Company Number: US-BAYER-201028302NA

PATIENT
  Age: 43 Year
  Sex: Female
  Weight: 97 kg

DRUGS (4)
  1. YAZ [Suspect]
     Indication: PREMENSTRUAL SYNDROME
     Dosage: UNK UNK, UNK
     Route: 048
     Dates: start: 20070614, end: 20071128
  2. YAZ [Suspect]
     Indication: DYSMENORRHOEA
  3. PREVACID [Concomitant]
     Indication: GASTROOESOPHAGEAL REFLUX DISEASE
     Dosage: UNK
     Dates: start: 20040101
  4. YAZ [Suspect]
     Indication: MENORRHAGIA

REACTIONS (3)
  - OEDEMA PERIPHERAL [None]
  - PULMONARY EMBOLISM [None]
  - DEEP VEIN THROMBOSIS [None]
